FAERS Safety Report 25909422 (Version 2)
Quarter: 2025Q4

REPORT INFORMATION
  Report Type: Spontaneous
  Country: RU (occurrence: RU)
  Receive Date: 20251011
  Receipt Date: 20251029
  Transmission Date: 20260117
  Serious: No
  Sender: ANI
  Company Number: RU-ANIPHARMA-030886

PATIENT
  Sex: Female

DRUGS (2)
  1. FLUVOXAMINE MALEATE [Suspect]
     Active Substance: FLUVOXAMINE MALEATE
     Indication: Product used for unknown indication
  2. ATARAX [Concomitant]
     Active Substance: HYDROXYZINE HYDROCHLORIDE
     Indication: Product used for unknown indication

REACTIONS (2)
  - Vomiting [Unknown]
  - Anxiety [Unknown]
